FAERS Safety Report 15074002 (Version 1)
Quarter: 2018Q2

REPORT INFORMATION
  Report Type: Spontaneous
  Country: US (occurrence: US)
  Receive Date: 20180627
  Receipt Date: 20180627
  Transmission Date: 20180711
  Serious: Yes (Other)
  Sender: FDA-Public Use
  Company Number: US-MYLANLABS-2018M1045332

PATIENT
  Age: 39 Year
  Sex: Male

DRUGS (6)
  1. BACLOFEN. [Suspect]
     Active Substance: BACLOFEN
     Dosage: 6 OPTIONAL DAILY BOLUS DOSES
     Route: 037
  2. BUPIVACAINE. [Suspect]
     Active Substance: BUPIVACAINE
     Dosage: 6 OPTIONAL DAILY BOLUS DOSES
     Route: 037
  3. HYDROMORPHONE [Suspect]
     Active Substance: HYDROMORPHONE
     Dosage: 6 OPTIONAL DAILY BOLUS DOSES
     Route: 037
  4. BACLOFEN. [Suspect]
     Active Substance: BACLOFEN
     Indication: BACK PAIN
     Route: 037
     Dates: start: 200607
  5. BUPIVACAINE. [Suspect]
     Active Substance: BUPIVACAINE
     Indication: BACK PAIN
     Route: 037
     Dates: start: 200607
  6. HYDROMORPHONE [Suspect]
     Active Substance: HYDROMORPHONE
     Indication: BACK PAIN
     Route: 037
     Dates: start: 200607

REACTIONS (2)
  - Calcinosis [Unknown]
  - Arachnoiditis [Unknown]
